FAERS Safety Report 13356344 (Version 2)
Quarter: 2017Q1

REPORT INFORMATION
  Report Type: Spontaneous
  Country: US (occurrence: US)
  Receive Date: 20170321
  Receipt Date: 20170331
  Transmission Date: 20170429
  Serious: Yes (Hospitalization, Other)
  Sender: FDA-Public Use
  Company Number: US-GLAXOSMITHKLINE-US2017039454

PATIENT
  Age: 49 Year
  Sex: Female

DRUGS (1)
  1. LAMICTAL [Suspect]
     Active Substance: LAMOTRIGINE
     Indication: PRODUCT USED FOR UNKNOWN INDICATION
     Dosage: 400 MG, BID

REACTIONS (5)
  - Fall [Unknown]
  - Drug dose omission [Unknown]
  - Seizure [Not Recovered/Not Resolved]
  - Underdose [Unknown]
  - Contusion [Unknown]

NARRATIVE: CASE EVENT DATE: 20170319
